FAERS Safety Report 5463028-9 (Version None)
Quarter: 2007Q3

REPORT INFORMATION
  Report Type: 
  Country: None (occurrence: None)
  Receive Date: 20070918
  Receipt Date: 20070918
  Transmission Date: 20080115
  Serious: No
  Sender: FDA-Public Use
  Company Number: None

PATIENT
  Age: 36 Year
  Sex: Female
  Weight: 61.2356 kg

DRUGS (2)
  1. ZYPREXA [Suspect]
     Indication: INSOMNIA
     Dosage: 3 PILLS ALL AT ONCE 1 PILL EVERY 5 HOURS AFTE
     Dates: start: 20030623, end: 20030627
  2. ZYPREXA [Suspect]
     Indication: MANIA
     Dosage: 3 PILLS ALL AT ONCE 1 PILL EVERY 5 HOURS AFTE
     Dates: start: 20030623, end: 20030627

REACTIONS (1)
  - TARDIVE DYSKINESIA [None]
